FAERS Safety Report 17098644 (Version 1)
Quarter: 2019Q4

REPORT INFORMATION
  Report Type: Spontaneous
  Country: GB (occurrence: GB)
  Receive Date: 20191202
  Receipt Date: 20191202
  Transmission Date: 20200122
  Serious: Yes (Life-Threatening, Disabling, Other)
  Sender: FDA-Public Use
  Company Number: GB-PFIZER INC-2019035283

PATIENT
  Age: 55 Year
  Sex: Female
  Weight: 65 kg

DRUGS (4)
  1. CYCLOPHOSPHAMIDE. [Suspect]
     Active Substance: CYCLOPHOSPHAMIDE
     Indication: BREAST CANCER
     Dosage: 4 TREATMENT ROUNDS
     Dates: start: 20010911
  2. DOXORUBICIN HCL [Suspect]
     Active Substance: DOXORUBICIN HYDROCHLORIDE
     Indication: BREAST CANCER
     Dosage: I HAD 4 TREATMENT ROUNDS.
     Route: 051
     Dates: start: 20010911
  3. EPIRUBICIN HCL [Suspect]
     Active Substance: EPIRUBICIN HYDROCHLORIDE
     Indication: BREAST CANCER
     Dosage: ONE TREATMENT ROUND.
     Route: 051
     Dates: start: 2007
  4. TAXOTERE [Suspect]
     Active Substance: DOCETAXEL
     Indication: BREAST CANCER
     Dosage: 3 TREATMENT ROUNDS
     Dates: start: 2007

REACTIONS (6)
  - Dizziness [Unknown]
  - Panic attack [Unknown]
  - Cardiac failure [Not Recovered/Not Resolved]
  - Extrasystoles [Unknown]
  - Anxiety [Unknown]
  - Palpitations [Unknown]

NARRATIVE: CASE EVENT DATE: 20160830
